FAERS Safety Report 24269526 (Version 1)
Quarter: 2024Q3

REPORT INFORMATION
  Report Type: Spontaneous
  Country: JP (occurrence: None)
  Receive Date: 20240830
  Receipt Date: 20240830
  Transmission Date: 20241017
  Serious: Yes (Other)
  Sender: ASTRAZENECA
  Company Number: 2024A194692

PATIENT
  Age: 85 Year
  Sex: Male

DRUGS (10)
  1. DAPAGLIFLOZIN [Suspect]
     Active Substance: DAPAGLIFLOZIN
     Indication: Cardiac failure chronic
     Route: 048
     Dates: start: 20240612, end: 20240625
  2. BEPRIDIL [Concomitant]
     Active Substance: BEPRIDIL
     Dosage: DOSE UNKNOWN
     Route: 048
     Dates: start: 20230614
  3. ENALAPRIL MALEATE [Concomitant]
     Active Substance: ENALAPRIL MALEATE
     Dosage: DOSE UNKNOWN
     Route: 048
     Dates: start: 20230301
  4. ROSUVASTATIN [Concomitant]
     Active Substance: ROSUVASTATIN\ROSUVASTATIN CALCIUM
     Dosage: DOSE UNKNOWN
     Route: 048
     Dates: start: 20230215
  5. BISOPROLOL FUMARATE [Concomitant]
     Active Substance: BISOPROLOL FUMARATE
     Dosage: DOSE UNKNOWN
     Route: 048
     Dates: start: 20240201
  6. ASPIRIN\LANSOPRAZOLE [Concomitant]
     Active Substance: ASPIRIN\LANSOPRAZOLE
     Dosage: DOSE UNKNOWN
     Route: 048
     Dates: start: 20231102
  7. AMBROXOL HYDROCHLORIDE OD [Concomitant]
     Dosage: DOSE UNKNOWN
     Route: 048
     Dates: start: 20231102
  8. AMLODIPINE [Concomitant]
     Active Substance: AMLODIPINE BESYLATE
     Dosage: DOSE UNKNOWN
     Route: 048
     Dates: start: 20240221
  9. PROCATEROL HYDROCHLORIDE [Concomitant]
     Active Substance: PROCATEROL HYDROCHLORIDE
     Dosage: DOSE UNKNOWN
     Route: 055
     Dates: start: 20210621
  10. FLUTICASONE FUROATE\VILANTEROL TRIFENATATE [Concomitant]
     Active Substance: FLUTICASONE FUROATE\VILANTEROL TRIFENATATE
     Dosage: DOSE UNKNOWN
     Route: 055
     Dates: start: 20231102

REACTIONS (3)
  - Lip oedema [Recovered/Resolved]
  - Lip erosion [Recovered/Resolved]
  - Ocular hyperaemia [Recovered/Resolved]

NARRATIVE: CASE EVENT DATE: 20240614
